FAERS Safety Report 20931879 (Version 1)
Quarter: 2022Q2

REPORT INFORMATION
  Report Type: Spontaneous
  Country: DE (occurrence: DE)
  Receive Date: 20220608
  Receipt Date: 20220608
  Transmission Date: 20220721
  Serious: Yes (Other)
  Sender: FDA-Public Use
  Company Number: None

PATIENT
  Age: 63 Year
  Sex: Female
  Weight: 66 kg

DRUGS (1)
  1. AMITRIPTYLINE [Suspect]
     Active Substance: AMITRIPTYLINE
     Indication: Migraine prophylaxis
     Dosage: 3 X DAILY 25 MG
     Route: 048
     Dates: start: 20210801, end: 20220209

REACTIONS (3)
  - Electrocardiogram QT prolonged [Recovered/Resolved with Sequelae]
  - Cardiac hypertrophy [Recovered/Resolved with Sequelae]
  - Heart rate increased [Recovered/Resolved]

NARRATIVE: CASE EVENT DATE: 20211116
